FAERS Safety Report 24071267 (Version 1)
Quarter: 2024Q3

REPORT INFORMATION
  Report Type: Report from Study
  Country: DE (occurrence: DE)
  Receive Date: 20240710
  Receipt Date: 20240710
  Transmission Date: 20241016
  Serious: No
  Sender: ROCHE
  Company Number: DE-ROCHE-3450790

PATIENT
  Age: 41 Year
  Sex: Female
  Weight: 39.0 kg

DRUGS (1)
  1. EVRYSDI [Suspect]
     Active Substance: RISDIPLAM
     Indication: Spinal muscular atrophy
     Dosage: DATE OF TREATMENT: 07/AUG/2023, ON 22/FEB/2024 SHE RECEIVED LAST DOSE OF RISDIPLAM.
     Route: 048
     Dates: start: 20210606

REACTIONS (2)
  - COVID-19 [Recovered/Resolved]
  - Gastroenteritis [Recovered/Resolved]

NARRATIVE: CASE EVENT DATE: 20230601
